FAERS Safety Report 9782255 (Version 2)
Quarter: 2014Q1

REPORT INFORMATION
  Report Type: Spontaneous
  Country: US (occurrence: US)
  Receive Date: 20131226
  Receipt Date: 20140114
  Transmission Date: 20141002
  Serious: Yes (Other)
  Sender: FDA-Public Use
  Company Number: US-JNJFOC-20131212248

PATIENT
  Age: 51 Year
  Sex: Female
  Weight: 116.58 kg

DRUGS (13)
  1. XARELTO [Suspect]
     Indication: ANTICOAGULANT THERAPY
     Route: 048
     Dates: start: 20131218
  2. XARELTO [Suspect]
     Indication: ANTICOAGULANT THERAPY
     Route: 048
     Dates: start: 20131213, end: 20131214
  3. XARELTO [Suspect]
     Indication: PULMONARY EMBOLISM
     Route: 048
     Dates: start: 20131213, end: 20131214
  4. XARELTO [Suspect]
     Indication: PULMONARY EMBOLISM
     Route: 048
     Dates: start: 20131218
  5. XARELTO [Suspect]
     Indication: DEEP VEIN THROMBOSIS
     Route: 048
     Dates: start: 20131218
  6. XARELTO [Suspect]
     Indication: DEEP VEIN THROMBOSIS
     Route: 048
     Dates: start: 20131213, end: 20131214
  7. OXYMORPHONE [Concomitant]
     Indication: BACK PAIN
     Route: 048
  8. METHADONE [Concomitant]
     Indication: BACK PAIN
     Dosage: AS REQUIRED
     Route: 048
  9. VENTOLIN [Concomitant]
     Indication: CHRONIC OBSTRUCTIVE PULMONARY DISEASE
     Dosage: AS REQUIRED
     Route: 065
  10. PROAIR (FLUTICASONE PROPIONATE) [Concomitant]
     Indication: CHRONIC OBSTRUCTIVE PULMONARY DISEASE
     Dosage: AS REQUIRED
     Route: 065
  11. IBUPROFEN [Concomitant]
     Dosage: AS REQUIRED
     Route: 065
  12. PHENTERMINE [Concomitant]
     Route: 065
  13. GARAMYCINA [Concomitant]
     Route: 065

REACTIONS (4)
  - Haemorrhage [Unknown]
  - Rash macular [Unknown]
  - Incorrect dose administered [Unknown]
  - Flushing [Recovered/Resolved]
